FAERS Safety Report 18551942 (Version 1)
Quarter: 2020Q4

REPORT INFORMATION
  Report Type: Report from Study
  Country: None (occurrence: US)
  Receive Date: 20201126
  Receipt Date: 20201126
  Transmission Date: 20210114
  Serious: Yes (Other)
  Sender: FDA-Public Use
  Company Number: US-ABBVIE-20K-163-3651118-00

PATIENT
  Age: 48 Year
  Sex: Female

DRUGS (2)
  1. HUMIRA [Suspect]
     Active Substance: ADALIMUMAB
     Indication: RHEUMATOID ARTHRITIS
     Route: 058
  2. HUMIRA [Suspect]
     Active Substance: ADALIMUMAB
     Route: 058

REACTIONS (8)
  - Colitis [Recovered/Resolved]
  - Hyperkeratosis [Unknown]
  - Fat tissue increased [Unknown]
  - Clostridium difficile infection [Unknown]
  - Weight increased [Unknown]
  - Pain in extremity [Unknown]
  - Spinal fusion surgery [Recovered/Resolved]
  - Lipoedema [Not Recovered/Not Resolved]

NARRATIVE: CASE EVENT DATE: 201902
